FAERS Safety Report 17439787 (Version 1)
Quarter: 2020Q1

REPORT INFORMATION
  Report Type: Report from Study
  Country: US (occurrence: US)
  Receive Date: 20200220
  Receipt Date: 20200220
  Transmission Date: 20200409
  Serious: No
  Sender: FDA-Public Use
  Company Number: NVSC2020US047553

PATIENT
  Age: 77 Year
  Sex: Female

DRUGS (1)
  1. ENTRESTO [Suspect]
     Active Substance: SACUBITRIL\VALSARTAN
     Indication: CARDIAC FAILURE CHRONIC
     Dosage: 1 DF (24MG SACUBITRIL/ 26MG VALSARTAN), BID
     Route: 048
     Dates: start: 201801

REACTIONS (2)
  - Speech disorder [Unknown]
  - Influenza [Unknown]

NARRATIVE: CASE EVENT DATE: 201902
